FAERS Safety Report 12548952 (Version 1)
Quarter: 2016Q3

REPORT INFORMATION
  Report Type: Spontaneous
  Country: US (occurrence: US)
  Receive Date: 20160712
  Receipt Date: 20160712
  Transmission Date: 20161109
  Serious: Yes (Other)
  Sender: FDA-Public Use
  Company Number: US-SA-2016SA125056

PATIENT
  Age: 63 Year
  Sex: Female

DRUGS (4)
  1. AUBAGIO [Suspect]
     Active Substance: TERIFLUNOMIDE
     Indication: MULTIPLE SCLEROSIS
     Route: 048
     Dates: start: 201509
  2. VITAMIN B [Concomitant]
     Active Substance: VITAMIN B
  3. ZANAFLEX [Concomitant]
     Active Substance: TIZANIDINE HYDROCHLORIDE
  4. VITAMIN D [Concomitant]
     Active Substance: CHOLECALCIFEROL

REACTIONS (5)
  - Pyrexia [Unknown]
  - Multiple sclerosis relapse [Unknown]
  - Influenza [Unknown]
  - Urinary tract infection [Unknown]
  - Costochondritis [Unknown]

NARRATIVE: CASE EVENT DATE: 20160423
